FAERS Safety Report 9007366 (Version 2)
Quarter: 2013Q4

REPORT INFORMATION
  Report Type: Spontaneous
  Country: GB (occurrence: GB)
  Receive Date: 20130110
  Receipt Date: 20131003
  Transmission Date: 20140711
  Serious: Yes (Hospitalization, Other)
  Sender: FDA-Public Use
  Company Number: GB-TEVA-378859ISR

PATIENT
  Age: 58 Year
  Sex: Male

DRUGS (7)
  1. LAMOTRIGINE [Suspect]
     Indication: DEPRESSED MOOD
     Dosage: 100 MILLIGRAM DAILY;
     Route: 048
  2. PROCYCLIDINE [Suspect]
     Indication: EXTRAPYRAMIDAL DISORDER
     Dosage: 10 MILLIGRAM DAILY; AT NIGHT
     Route: 048
  3. VENLAFAXINE [Suspect]
     Indication: DEPRESSION
     Route: 048
  4. MIRTAZAPINE [Suspect]
     Indication: DEPRESSION
     Dosage: 45 MILLIGRAM DAILY; AT NIGHT
     Route: 048
  5. ZAPONEX [Suspect]
     Indication: SCHIZOPHRENIA
     Dosage: AT NIGHT
     Route: 048
     Dates: start: 20120806, end: 20120823
  6. KWELLS [Suspect]
     Indication: SALIVARY HYPERSECRETION
     Dosage: 300 MICROGRAM DAILY; AT NIGHT
     Route: 060
  7. ARIPIPRAZOLE [Suspect]
     Dosage: 30 MILLIGRAM DAILY;
     Route: 048

REACTIONS (12)
  - Neutropenia [Recovered/Resolved]
  - Leukopenia [Recovered/Resolved]
  - Anaemia [Not Recovered/Not Resolved]
  - Full blood count abnormal [Recovered/Resolved]
  - Lymphocyte count decreased [Not Recovered/Not Resolved]
  - Mean cell haemoglobin decreased [Not Recovered/Not Resolved]
  - White blood cell count decreased [Recovered/Resolved]
  - Platelet count decreased [Recovered/Resolved]
  - Mean cell volume decreased [Not Recovered/Not Resolved]
  - Red blood cell count decreased [Not Recovered/Not Resolved]
  - Neutrophil count decreased [Recovered/Resolved]
  - Haematocrit decreased [Not Recovered/Not Resolved]
